FAERS Safety Report 21838886 (Version 2)
Quarter: 2023Q1

REPORT INFORMATION
  Report Type: Report from Study
  Country: US (occurrence: US)
  Receive Date: 20230109
  Receipt Date: 20230120
  Transmission Date: 20230418
  Serious: No
  Sender: FDA-Public Use
  Company Number: US-ABBVIE-4262246

PATIENT
  Sex: Female

DRUGS (1)
  1. VENCLEXTA [Suspect]
     Active Substance: VENETOCLAX
     Indication: Acute myeloid leukaemia
     Route: 048
     Dates: start: 20230102

REACTIONS (5)
  - Insomnia [Unknown]
  - White blood cell count increased [Unknown]
  - Constipation [Unknown]
  - Ageusia [Unknown]
  - Fatigue [Unknown]
